FAERS Safety Report 24009561 (Version 4)
Quarter: 2024Q3

REPORT INFORMATION
  Report Type: Spontaneous
  Country: BR (occurrence: BR)
  Receive Date: 20240625
  Receipt Date: 20240916
  Transmission Date: 20241017
  Serious: Yes (Other)
  Sender: BAYER
  Company Number: BR-BAYER-2024A089769

PATIENT
  Age: 46 Year
  Sex: Female

DRUGS (1)
  1. MIRENA [Suspect]
     Active Substance: LEVONORGESTREL
     Indication: Anaemia
     Dosage: 20?G/DAY
     Route: 015
     Dates: start: 20200117

REACTIONS (6)
  - Device breakage [None]
  - Uterine leiomyoma [None]
  - Device dislocation [None]
  - Heavy menstrual bleeding [None]
  - Off label use [None]
  - Off label use of device [None]

NARRATIVE: CASE EVENT DATE: 20200117
